FAERS Safety Report 7827236-1 (Version None)
Quarter: 2011Q4

REPORT INFORMATION
  Report Type: 
  Country: None (occurrence: None)
  Receive Date: 20111020
  Receipt Date: 20111014
  Transmission Date: 20120403
  Serious: Yes (Death, Other)
  Sender: FDA-Public Use
  Company Number: JP-PFIZER INC-2011198253

PATIENT
  Age: 59 Year
  Sex: Male
  Weight: 56.9 kg

DRUGS (11)
  1. OXYCONTIN [Concomitant]
     Indication: RENAL CELL CARCINOMA
     Dosage: 4 MG, 2X/DAY
     Route: 048
  2. TEMSIROLIMUS [Suspect]
     Indication: RENAL CELL CARCINOMA
     Dosage: 25 MG, UNK
     Dates: start: 20110215
  3. OXINORM [Concomitant]
     Indication: RENAL CELL CARCINOMA
     Dosage: 10 MG, 1X/DAY
     Route: 048
  4. GASMOTIN [Concomitant]
     Indication: PROPHYLAXIS
     Dosage: 5 MG, 2X/DAY
     Route: 048
  5. LOPERAMIDE HCL [Concomitant]
     Indication: PROPHYLAXIS
     Dosage: 1 MG, 3X/DAY
     Route: 048
     Dates: start: 20110215
  6. NIZATIDINE [Concomitant]
     Indication: PROPHYLAXIS
     Dosage: 150 MG, 2X/DAY
     Route: 048
  7. DECADRON [Concomitant]
     Dosage: 1 MG, 1X/DAY
     Route: 048
  8. RESTAMIN [Concomitant]
     Indication: PROPHYLAXIS
     Dosage: 10 MG, 3X/DAY
     Route: 048
     Dates: start: 20110215
  9. ALLOPURINOL [Concomitant]
     Dosage: 100 MG, 3X/DAY
     Route: 048
  10. SELBEX [Concomitant]
     Indication: PROPHYLAXIS
     Dosage: 50 MG, 3X/DAY
     Route: 048
     Dates: start: 20110215
  11. POLARAMINE [Concomitant]
     Indication: PROPHYLAXIS
     Dosage: 5 MG, 1X/DAY
     Route: 042

REACTIONS (2)
  - INTERSTITIAL LUNG DISEASE [None]
  - DEATH [None]
